FAERS Safety Report 9109217 (Version 1)
Quarter: 2013Q1

REPORT INFORMATION
  Report Type: Report from Study
  Country: IT (occurrence: IT)
  Receive Date: 20130222
  Receipt Date: 20130222
  Transmission Date: 20140127
  Serious: Yes (Death)
  Sender: FDA-Public Use
  Company Number: IT-PFIZER INC-2013063996

PATIENT
  Age: 78 Year
  Sex: Female
  Weight: 50 kg

DRUGS (10)
  1. IRINOTECAN HCL [Suspect]
     Indication: COLORECTAL CANCER METASTATIC
     Dosage: 180 MG/M2, UNK
     Route: 042
     Dates: start: 20120215, end: 20120724
  2. FLUOROURACIL [Suspect]
     Indication: COLORECTAL CANCER METASTATIC
     Dosage: 400 MG/M2 BOLUS ON DAY ONE EVERY 14 DAYS
     Route: 040
     Dates: start: 20120215, end: 20120724
  3. FLUOROURACIL [Suspect]
     Dosage: 2400 MG/M2 ON DAYS ONE AND TWO EVERY 14 DAYS
     Route: 042
     Dates: start: 20120215, end: 20120724
  4. FOLINIC ACID [Suspect]
     Indication: COLORECTAL CANCER METASTATIC
     Dosage: 400 MG/M2 ON DAY ONE EVERY 14 DAYS
     Route: 042
     Dates: start: 20120215, end: 20120724
  5. BLINDED THERAPY [Suspect]
     Indication: COLORECTAL CANCER METASTATIC
     Dosage: UNK
     Dates: start: 20120215, end: 20120724
  6. ATENOL [Concomitant]
     Indication: HYPERTENSION
     Dosage: UNK
     Dates: start: 20111021, end: 20120723
  7. LANSOPRAZOL [Concomitant]
     Indication: PROPHYLAXIS
     Dosage: UNK
     Dates: start: 20110228, end: 20120723
  8. TAVANIC [Concomitant]
     Indication: PROPHYLAXIS
     Dosage: UNK
     Dates: start: 20120720, end: 20120724
  9. TACHIDOL [Concomitant]
     Indication: PAIN
     Dosage: UNK
     Dates: end: 20120723
  10. XANAX [Concomitant]
     Indication: ANXIETY
     Dosage: UNK
     Dates: start: 20110228, end: 20120723

REACTIONS (3)
  - Acute hepatic failure [Fatal]
  - Hepatorenal syndrome [Fatal]
  - Hepatic haematoma [Fatal]
